FAERS Safety Report 8606243-5 (Version None)
Quarter: 2012Q3

REPORT INFORMATION
  Report Type: 
  Country: None (occurrence: None)
  Receive Date: 20120820
  Receipt Date: 20120816
  Transmission Date: 20120928
  Serious: Yes (Life-Threatening, Hospitalization)
  Sender: FDA-Public Use
  Company Number: BA-ROCHE-1102611

PATIENT
  Sex: Female
  Weight: 95 kg

DRUGS (1)
  1. HERCEPTIN [Suspect]
     Indication: BREAST CANCER
     Route: 042
     Dates: start: 20120628, end: 20120719

REACTIONS (1)
  - GASTROINTESTINAL HAEMORRHAGE [None]
